FAERS Safety Report 15850779 (Version 3)
Quarter: 2019Q1

REPORT INFORMATION
  Report Type: Report from Study
  Country: US (occurrence: US)
  Receive Date: 20190121
  Receipt Date: 20190315
  Transmission Date: 20190417
  Serious: Yes (Other)
  Sender: FDA-Public Use
  Company Number: US-MALLINCKRODT-T201900976

PATIENT
  Sex: Male

DRUGS (4)
  1. REPOSITORY CORTICOTROPIN INJECTION [Suspect]
     Active Substance: CORTICOTROPIN
     Indication: SARCOIDOSIS
     Dosage: 80 UNITS/1 ML, 2 TIMES PER WEEK TUESDAY/FRIDAY
     Route: 058
     Dates: start: 20180227
  2. REPOSITORY CORTICOTROPIN INJECTION [Suspect]
     Active Substance: CORTICOTROPIN
     Dosage: 80 UNITS/1 ML, 2 TIMES PER WEEK TUESDAY/THURSDAY
     Route: 058
     Dates: start: 2019, end: 20190226
  3. METHOTREXATE. [Concomitant]
     Active Substance: METHOTREXATE
     Indication: PRODUCT USED FOR UNKNOWN INDICATION
     Dosage: UNKNOWN
     Route: 065
  4. REPOSITORY CORTICOTROPIN INJECTION [Suspect]
     Active Substance: CORTICOTROPIN
     Dosage: 80 UNITS/1 ML, 2 TIMES PER WEEK TUESDAY/THURSDAY
     Route: 058
     Dates: end: 20190207

REACTIONS (7)
  - Gait disturbance [Unknown]
  - Flushing [Not Recovered/Not Resolved]
  - Memory impairment [Not Recovered/Not Resolved]
  - Night sweats [Unknown]
  - Tachycardia [Not Recovered/Not Resolved]
  - Platelet count decreased [Not Recovered/Not Resolved]
  - Arthralgia [Not Recovered/Not Resolved]
